FAERS Safety Report 9178214 (Version 3)
Quarter: 2013Q4

REPORT INFORMATION
  Report Type: Spontaneous
  Country: NL (occurrence: NL)
  Receive Date: 20130321
  Receipt Date: 20131023
  Transmission Date: 20140711
  Serious: Yes (Other)
  Sender: FDA-Public Use
  Company Number: NL-ELI_LILLY_AND_COMPANY-NL201303005128

PATIENT
  Age: 63 Year
  Sex: Male

DRUGS (4)
  1. ALIMTA [Suspect]
     Indication: MESOTHELIOMA
  2. CISPLATIN [Concomitant]
  3. FOLIC ACID [Concomitant]
  4. VITAMIN B12                        /00056201/ [Concomitant]

REACTIONS (8)
  - Nephritis [Unknown]
  - Haemoglobin decreased [Unknown]
  - Haematocrit decreased [Unknown]
  - Platelet count increased [Unknown]
  - Aspartate aminotransferase increased [Recovered/Resolved]
  - Blood lactate dehydrogenase increased [Unknown]
  - Gamma-glutamyltransferase increased [Unknown]
  - White blood cell count increased [Unknown]
